FAERS Safety Report 5199150-4 (Version None)
Quarter: 2007Q1

REPORT INFORMATION
  Report Type: 
  Country: None (occurrence: None)
  Receive Date: 20070104
  Receipt Date: 20061226
  Transmission Date: 20070707
  Serious: Yes (Other)
  Sender: FDA-Public Use
  Company Number: JP-PFIZER INC-2006128651

PATIENT
  Age: 61 Year
  Sex: Female

DRUGS (1)
  1. ZOLOFT [Suspect]
     Dosage: DAILY DOSE:100MG
     Route: 048

REACTIONS (3)
  - AKINESIA [None]
  - PARKINSONIAN GAIT [None]
  - TREMOR [None]
